FAERS Safety Report 5400068-X (Version None)
Quarter: 2007Q3

REPORT INFORMATION
  Report Type: 
  Country: None (occurrence: None)
  Receive Date: 20070726
  Receipt Date: 20070726
  Transmission Date: 20080115
  Serious: Yes (Hospitalization, Other)
  Sender: FDA-Public Use
  Company Number: None

PATIENT
  Age: 45 Year
  Sex: Female
  Weight: 92.9874 kg

DRUGS (1)
  1. PREDNISONE [Suspect]

REACTIONS (3)
  - CONVULSION [None]
  - MALAISE [None]
  - PANIC ATTACK [None]
